FAERS Safety Report 12855878 (Version 2)
Quarter: 2016Q4

REPORT INFORMATION
  Report Type: Spontaneous
  Country: US (occurrence: US)
  Receive Date: 20161018
  Receipt Date: 20161018
  Transmission Date: 20170207
  Serious: Yes (Other)
  Sender: FDA-Public Use
  Company Number: US-CIPLA LTD.-2016US19342

PATIENT

DRUGS (11)
  1. GABAPENTIN. [Suspect]
     Active Substance: GABAPENTIN
     Dosage: 600 MG, BID
     Route: 065
  2. TRIAMCINOLONE [Interacting]
     Active Substance: TRIAMCINOLONE
     Indication: LUMBAR RADICULOPATHY
     Dosage: 80 MG, THREE INJECTION
     Route: 008
  3. ATAZANAVIR/RITONAVIR [Suspect]
     Active Substance: ATAZANAVIR\RITONAVIR
     Indication: HIV INFECTION CDC CATEGORY C
     Dosage: UNK
     Route: 065
  4. ATORVASTATIN [Suspect]
     Active Substance: ATORVASTATIN
     Dosage: UNK
     Route: 065
  5. GEMFIBROZIL. [Suspect]
     Active Substance: GEMFIBROZIL
     Dosage: 600 MG, BID
     Route: 065
  6. LOPINAVIR/RITONAVIR [Suspect]
     Active Substance: LOPINAVIR\RITONAVIR
     Indication: HIV INFECTION CDC CATEGORY C
     Dosage: UNK, PREVIOUS
     Route: 065
  7. AMITRIPTYLINE [Suspect]
     Active Substance: AMITRIPTYLINE
     Dosage: 50 MG, DAILY
     Route: 065
  8. LOPINAVIR/RITONAVIR [Suspect]
     Active Substance: LOPINAVIR\RITONAVIR
     Dosage: UNK
     Route: 065
  9. TENOFOVIR [Suspect]
     Active Substance: TENOFOVIR
     Indication: HIV INFECTION CDC CATEGORY C
     Dosage: UNK
     Route: 065
  10. SERTRALINE [Suspect]
     Active Substance: SERTRALINE HYDROCHLORIDE
     Dosage: 200 MG, DAILY
     Route: 065
  11. EMTRICITABINE [Suspect]
     Active Substance: EMTRICITABINE
     Indication: HIV INFECTION CDC CATEGORY C
     Dosage: UNK
     Route: 065

REACTIONS (8)
  - Drug interaction [Unknown]
  - Lumbar radiculopathy [Recovering/Resolving]
  - Oesophageal candidiasis [Unknown]
  - Adrenal suppression [Recovered/Resolved]
  - Diarrhoea [Unknown]
  - Drug resistance [Unknown]
  - Cushing^s syndrome [Recovered/Resolved]
  - Treatment noncompliance [Unknown]
